FAERS Safety Report 14375778 (Version 1)
Quarter: 2018Q1

REPORT INFORMATION
  Report Type: Spontaneous
  Country: US (occurrence: US)
  Receive Date: 20180111
  Receipt Date: 20180111
  Transmission Date: 20180509
  Serious: No
  Sender: FDA-Public Use
  Company Number: US-BAYER-2018-005522

PATIENT
  Age: 85 Year
  Sex: Male
  Weight: 61 kg

DRUGS (2)
  1. ACECOL [Concomitant]
     Active Substance: TEMOCAPRIL HYDROCHLORIDE
     Dosage: UNK
  2. MIRALAX [Suspect]
     Active Substance: POLYETHYLENE GLYCOL 3350
     Indication: GASTROINTESTINAL DISORDER
     Dosage: UNK
     Route: 048
     Dates: start: 20170102

REACTIONS (4)
  - Drug prescribing error [Unknown]
  - Pain [Unknown]
  - Product use issue [Unknown]
  - Product use in unapproved indication [Unknown]

NARRATIVE: CASE EVENT DATE: 20180102
